FAERS Safety Report 20115941 (Version 3)
Quarter: 2022Q1

REPORT INFORMATION
  Report Type: Spontaneous
  Country: US (occurrence: None)
  Receive Date: 20211126
  Receipt Date: 20220115
  Transmission Date: 20220423
  Serious: Yes (Hospitalization)
  Sender: FDA-Public Use
  Company Number: US-ROCHE-2959974

PATIENT
  Sex: Male

DRUGS (2)
  1. ESBRIET [Suspect]
     Active Substance: PIRFENIDONE
     Indication: Idiopathic pulmonary fibrosis
     Dosage: TAKE 1 TABLET TID FOR 1 WEEK, 2 TABLETS TID FOR 1 WEEK THEN 3 TABLETS TID WITH MEALS.
     Route: 048
     Dates: start: 20211018
  2. ESBRIET [Suspect]
     Active Substance: PIRFENIDONE
     Dosage: TAKE 1 TABLET TID FOR 1 WEEK, 2 TABLETS TID FOR 1 WEEK THEN 3 TABLETS TID WITH MEALS.
     Route: 048
     Dates: start: 202110

REACTIONS (2)
  - Fall [Recovered/Resolved]
  - Femur fracture [Unknown]
